FAERS Safety Report 7516099-X (Version None)
Quarter: 2011Q2

REPORT INFORMATION
  Report Type: 
  Country: None (occurrence: None)
  Receive Date: 20110601
  Receipt Date: 20110526
  Transmission Date: 20111010
  Serious: Yes (Life-Threatening, Hospitalization)
  Sender: FDA-Public Use
  Company Number: IT-ASTRAZENECA-2011SE29278

PATIENT
  Age: 25250 Day
  Sex: Female

DRUGS (1)
  1. IRESSA [Suspect]
     Indication: LUNG CARCINOMA CELL TYPE UNSPECIFIED RECURRENT
     Route: 048
     Dates: start: 20110418, end: 20110516

REACTIONS (2)
  - LARGE INTESTINE PERFORATION [None]
  - PERITONITIS [None]
